FAERS Safety Report 6449980-3 (Version None)
Quarter: 2009Q4

REPORT INFORMATION
  Report Type: 
  Country: None (occurrence: None)
  Receive Date: 20091120
  Receipt Date: 20091120
  Transmission Date: 20100525
  Serious: Yes (Hospitalization)
  Sender: FDA-Public Use
  Company Number: None

PATIENT
  Age: 1 Day
  Sex: Male
  Weight: 3.3 kg

DRUGS (1)
  1. GENTAK [Suspect]
     Indication: NEONATAL DISORDER
     Dosage: 1 LINE PER EYE ONE TIME DOSE OPTHALMIC, 1 DOSE
     Route: 047
     Dates: start: 20091118, end: 20091118

REACTIONS (2)
  - BLISTER [None]
  - EYE SWELLING [None]
